FAERS Safety Report 23931568 (Version 1)
Quarter: 2024Q2

REPORT INFORMATION
  Report Type: Spontaneous
  Country: US (occurrence: US)
  Receive Date: 20240603
  Receipt Date: 20240603
  Transmission Date: 20240716
  Serious: No
  Sender: FDA-Public Use
  Company Number: None

PATIENT
  Age: 59 Year
  Sex: Female

DRUGS (9)
  1. VANCOMYCIN [Suspect]
     Active Substance: VANCOMYCIN
     Indication: Cellulitis staphylococcal
     Dosage: UNK
     Route: 065
  2. VANCOMYCIN [Suspect]
     Active Substance: VANCOMYCIN
     Indication: Cellulitis
  3. LINEZOLID [Concomitant]
     Active Substance: LINEZOLID
     Indication: Cellulitis staphylococcal
     Dosage: UNK
     Route: 065
  4. LINEZOLID [Concomitant]
     Active Substance: LINEZOLID
     Indication: Cellulitis
  5. WARFARIN [Concomitant]
     Active Substance: WARFARIN
     Indication: Embolism venous
     Dosage: UNK
     Route: 065
  6. POLYMYXIN B [Concomitant]
     Active Substance: POLYMYXIN B
     Indication: Cellulitis staphylococcal
     Dosage: UNK
     Route: 042
  7. POLYMYXIN B [Concomitant]
     Active Substance: POLYMYXIN B
     Indication: Cellulitis
  8. AZTREONAM [Concomitant]
     Active Substance: AZTREONAM
     Indication: Cellulitis staphylococcal
     Dosage: UNK
     Route: 065
  9. AZTREONAM [Concomitant]
     Active Substance: AZTREONAM
     Indication: Cellulitis

REACTIONS (2)
  - Drug hypersensitivity [Unknown]
  - Off label use [Unknown]
